FAERS Safety Report 7377650-6 (Version None)
Quarter: 2011Q1

REPORT INFORMATION
  Report Type: 
  Country: None (occurrence: None)
  Receive Date: 20110328
  Receipt Date: 20110316
  Transmission Date: 20110831
  Serious: Yes (Other)
  Sender: FDA-Public Use
  Company Number: FR-JNJFOC-20110309955

PATIENT
  Sex: Female

DRUGS (10)
  1. EFFERALGAN [Suspect]
     Indication: PAIN
     Route: 048
  2. ACUPAN [Concomitant]
  3. ESOMEPRAZOLE [Concomitant]
  4. DAFALGAN [Concomitant]
  5. ARIXTRA [Suspect]
     Indication: THROMBOSIS PROPHYLAXIS
     Route: 058
  6. BI-PROFENID [Concomitant]
  7. MYOLASTAN [Concomitant]
  8. TOPALGIC [Suspect]
     Indication: PAIN
     Route: 048
  9. CONTRAMAL [Suspect]
     Indication: PAIN
     Route: 065
  10. FERROUS SULFATE TAB [Concomitant]
     Route: 065

REACTIONS (2)
  - LEUKOPENIA [None]
  - NEUTROPENIA [None]
